FAERS Safety Report 19279447 (Version 1)
Quarter: 2021Q2

REPORT INFORMATION
  Report Type: Spontaneous
  Country: DK (occurrence: DK)
  Receive Date: 20210520
  Receipt Date: 20210520
  Transmission Date: 20210717
  Serious: Yes (Death, Other)
  Sender: FDA-Public Use
  Company Number: DK-BRISTOL-MYERS SQUIBB COMPANY-BMS-2021-047222

PATIENT
  Age: 76 Year
  Sex: Male

DRUGS (1)
  1. ELIQUIS [Suspect]
     Active Substance: APIXABAN
     Indication: THROMBOSIS PROPHYLAXIS
     Dosage: 10 MILLIGRAM, DAILY DOSE
     Route: 048
     Dates: start: 20200413, end: 20210422

REACTIONS (5)
  - Epistaxis [Fatal]
  - Cardiac arrest [Fatal]
  - Respiratory arrest [Fatal]
  - Somnolence [Fatal]
  - Respiratory tract haemorrhage [Fatal]

NARRATIVE: CASE EVENT DATE: 20210422
